FAERS Safety Report 4811402-3 (Version None)
Quarter: 2005Q4

REPORT INFORMATION
  Report Type: 
  Country: None (occurrence: None)
  Receive Date: 20051027
  Receipt Date: 20041115
  Transmission Date: 20060501
  Serious: Yes (Life-Threatening, Hospitalization)
  Sender: FDA-Public Use
  Company Number: PHBS2004JP15593

PATIENT
  Age: 60 Year
  Sex: Female

DRUGS (4)
  1. SANDOSTATIN LAR [Suspect]
     Indication: ACROMEGALY
     Dosage: 20 MG, QMO
     Route: 030
     Dates: start: 20040903, end: 20050628
  2. SANDOSTATIN LAR [Suspect]
     Dosage: 30 MG, ONCE/SINGLE
     Route: 030
     Dates: start: 20050726, end: 20050726
  3. SANDOSTATIN LAR [Suspect]
     Dosage: 40 MG, ONCE/SINGLE
     Route: 030
     Dates: start: 20050823, end: 20050823
  4. SANDOSTATIN [Suspect]
     Indication: ACROMEGALY
     Dosage: 300 UG/D
     Route: 065
     Dates: start: 19970117, end: 20040902

REACTIONS (3)
  - DIABETIC KETOACIDOSIS [None]
  - GAIT DISTURBANCE [None]
  - HYPERGLYCAEMIA [None]
